FAERS Safety Report 12508432 (Version 1)
Quarter: 2016Q2

REPORT INFORMATION
  Report Type: Spontaneous
  Country: US (occurrence: US)
  Receive Date: 20160629
  Receipt Date: 20160629
  Transmission Date: 20160815
  Serious: Yes (Other)
  Sender: FDA-Public Use
  Company Number: US-SA-2016SA101995

PATIENT
  Age: 65 Year
  Sex: Female

DRUGS (9)
  1. BACLOFEN. [Concomitant]
     Active Substance: BACLOFEN
  2. COUMADIN [Concomitant]
     Active Substance: WARFARIN SODIUM
  3. CELEBREX [Concomitant]
     Active Substance: CELECOXIB
  4. GRALISE [Concomitant]
     Active Substance: GABAPENTIN
  5. NUVIGIL [Concomitant]
     Active Substance: ARMODAFINIL
  6. NAMENDA [Concomitant]
     Active Substance: MEMANTINE HYDROCHLORIDE
  7. TOPROL XL [Concomitant]
     Active Substance: METOPROLOL SUCCINATE
  8. AUBAGIO [Suspect]
     Active Substance: TERIFLUNOMIDE
     Indication: MULTIPLE SCLEROSIS
     Route: 048
  9. AMPYRA [Concomitant]
     Active Substance: DALFAMPRIDINE

REACTIONS (3)
  - Gait disturbance [Unknown]
  - Tooth disorder [Unknown]
  - Fall [Unknown]

NARRATIVE: CASE EVENT DATE: 201602
